FAERS Safety Report 19755163 (Version 1)
Quarter: 2021Q3

REPORT INFORMATION
  Report Type: Spontaneous
  Country: US (occurrence: US)
  Receive Date: 20210827
  Receipt Date: 20210827
  Transmission Date: 20211014
  Serious: Yes (Hospitalization)
  Sender: FDA-Public Use
  Company Number: None

PATIENT
  Sex: Female

DRUGS (6)
  1. DARZALEX [Suspect]
     Active Substance: DARATUMUMAB
     Indication: PLASMA CELL MYELOMA IN REMISSION
     Dosage: ?          OTHER FREQUENCY:Q2WKS;?
     Route: 042
     Dates: start: 20210303
  2. DARZALEX [Suspect]
     Active Substance: DARATUMUMAB
     Indication: PLASMA CELL MYELOMA IN REMISSION
     Dosage: ?          OTHER FREQUENCY:Q2WKS;?
     Route: 042
     Dates: start: 20210303
  3. POMALYST [Concomitant]
     Active Substance: POMALIDOMIDE
  4. METOPROLOL. [Concomitant]
     Active Substance: METOPROLOL
  5. DEXAMETHASON [Concomitant]
     Active Substance: DEXAMETHASONE
  6. ACYCLOVIR. [Concomitant]
     Active Substance: ACYCLOVIR

REACTIONS (1)
  - Hospitalisation [None]
